FAERS Safety Report 20330239 (Version 1)
Quarter: 2022Q1

REPORT INFORMATION
  Report Type: Spontaneous
  Country: US (occurrence: US)
  Receive Date: 20220113
  Receipt Date: 20220113
  Transmission Date: 20220423
  Serious: Yes (Other)
  Sender: FDA-Public Use
  Company Number: US-CIPLA LTD.-2021US07279

PATIENT

DRUGS (1)
  1. GABAPENTIN [Suspect]
     Active Substance: GABAPENTIN
     Indication: Coeliac disease
     Dosage: UNK
     Route: 065

REACTIONS (8)
  - Anaphylactic reaction [Unknown]
  - Throat tightness [Unknown]
  - Illness [Unknown]
  - Eye swelling [Unknown]
  - Swelling face [Unknown]
  - Wrong technique in product usage process [Unknown]
  - Weight increased [Unknown]
  - Peripheral swelling [Unknown]
